FAERS Safety Report 5466369-4 (Version None)
Quarter: 2007Q3

REPORT INFORMATION
  Report Type: 
  Country: None (occurrence: None)
  Receive Date: 20070920
  Receipt Date: 20070905
  Transmission Date: 20080115
  Serious: Yes (Other)
  Sender: FDA-Public Use
  Company Number: L07-USA-03842-01

PATIENT
  Age: 37 Year
  Sex: Female

DRUGS (1)
  1. ESCITALOPRAM OXALATE [Suspect]
     Dosage: 30 TABLET ONCE

REACTIONS (4)
  - ABDOMINAL PAIN [None]
  - ARRHYTHMIA [None]
  - OVERDOSE [None]
  - SUICIDE ATTEMPT [None]
